FAERS Safety Report 6021086-7 (Version None)
Quarter: 2008Q4

REPORT INFORMATION
  Report Type: 
  Country: None (occurrence: None)
  Receive Date: 20081229
  Receipt Date: 20081215
  Transmission Date: 20090506
  Serious: Yes (Death, Hospitalization)
  Sender: FDA-Public Use
  Company Number: ES-PFIZER INC-2008088784

PATIENT

DRUGS (7)
  1. TRANKIMAZIN [Suspect]
     Indication: DEPRESSION
     Dosage: 2 MG, 1X/DAY
     Route: 048
     Dates: start: 20070927, end: 20080720
  2. METHADONE HYDROCHLORIDE [Suspect]
     Indication: DRUG DEPENDENCE
     Dosage: 80 MG, UNK
     Route: 048
     Dates: start: 20070927, end: 20080720
  3. RIBAVIRIN [Suspect]
     Indication: HEPATITIS C
     Dosage: 5 TIMES A DAY
     Route: 048
     Dates: start: 20080121, end: 20080720
  4. MYAMBUTOL [Suspect]
     Indication: PULMONARY TUBERCULOSIS
     Dosage: 400 MG, 3X/DAY
     Route: 048
     Dates: start: 20080710, end: 20080720
  5. PEGASYS [Suspect]
     Indication: HEPATITIS C
     Dosage: UNK
     Route: 058
     Dates: start: 20080121, end: 20080720
  6. REXER [Suspect]
     Indication: DEPRESSION
     Dosage: 30 MG, 1X/DAY
     Route: 048
     Dates: start: 20070927, end: 20080720
  7. RIFATER [Concomitant]
     Route: 048
     Dates: start: 20080710

REACTIONS (4)
  - ACIDOSIS [None]
  - MALAISE [None]
  - NAUSEA [None]
  - VOMITING [None]
